FAERS Safety Report 8783536 (Version 1)
Quarter: 2012Q4

REPORT INFORMATION
  Report Type: 
  Country: PT (occurrence: PT)
  Receive Date: 20120913
  Receipt Date: 20120913
  Transmission Date: 20130627
  Serious: Yes (Other)
  Sender: FDA-Public Use
  Company Number: PT-MYLANLABS-2012S1018625

PATIENT
  Age: 78 Year
  Sex: Male

DRUGS (1)
  1. AMLODIPINA MYLAN [Suspect]
     Indication: HYPERTENSION
     Route: 048
     Dates: start: 201205

REACTIONS (3)
  - Product substitution issue [Recovered/Resolved]
  - Drug ineffective [Recovered/Resolved]
  - Blood pressure inadequately controlled [Recovered/Resolved]
